FAERS Safety Report 8489047-6 (Version None)
Quarter: 2012Q3

REPORT INFORMATION
  Report Type: 
  Country: None (occurrence: None)
  Receive Date: 20120705
  Receipt Date: 20120703
  Transmission Date: 20120928
  Serious: No
  Sender: FDA-Public Use
  Company Number: US-PFIZER INC-2012159774

PATIENT
  Sex: Female

DRUGS (4)
  1. TARCEVA [Suspect]
     Indication: NON-SMALL CELL LUNG CANCER STAGE IV
     Dosage: 150 MG, 1X/DAY (UID/QD)
     Route: 048
  2. TARCEVA [Suspect]
     Dosage: 100 MG, 1X/DAY (UID/QD)
     Route: 048
  3. TARCEVA [Suspect]
     Dosage: 117 MG, 1X/DAY (UID/QD)
     Route: 048
  4. PROTONIX [Suspect]
     Indication: GASTROOESOPHAGEAL REFLUX DISEASE
     Dosage: UNK

REACTIONS (4)
  - GASTROOESOPHAGEAL REFLUX DISEASE [None]
  - MALAISE [None]
  - VOMITING [None]
  - FAECES DISCOLOURED [None]
